FAERS Safety Report 15690342 (Version 1)
Quarter: 2018Q4

REPORT INFORMATION
  Report Type: Spontaneous
  Country: US (occurrence: US)
  Receive Date: 20181205
  Receipt Date: 20181205
  Transmission Date: 20190205
  Serious: No
  Sender: FDA-Public Use
  Company Number: US-AMGEN-USASP2018171163

PATIENT
  Age: 45 Year
  Sex: Female

DRUGS (2)
  1. SENSIPAR [Suspect]
     Active Substance: CINACALCET HYDROCHLORIDE
     Indication: PRODUCT USED FOR UNKNOWN INDICATION
     Route: 065
  2. PARSABIV [Suspect]
     Active Substance: ETELCALCETIDE HYDROCHLORIDE
     Indication: BLOOD PARATHYROID HORMONE INCREASED
     Dosage: 5 MG, UNK
     Route: 065
     Dates: start: 20181127

REACTIONS (6)
  - Dysgeusia [Unknown]
  - Hypoaesthesia oral [Unknown]
  - Chest discomfort [Unknown]
  - Headache [Unknown]
  - Ear disorder [Unknown]
  - Drug intolerance [Unknown]

NARRATIVE: CASE EVENT DATE: 201811
